FAERS Safety Report 9093872 (Version 1)
Quarter: 2013Q1

REPORT INFORMATION
  Report Type: Spontaneous
  Country: US (occurrence: None)
  Receive Date: 20130214
  Receipt Date: 20130214
  Transmission Date: 20140127
  Serious: Yes (Hospitalization)
  Sender: FDA-Public Use
  Company Number: None

PATIENT
  Age: 65 Year
  Sex: Male

DRUGS (2)
  1. OLANZAPINE [Suspect]
     Indication: BIPOLAR DISORDER
     Route: 030
     Dates: start: 20121123, end: 20121123
  2. OLANZAPINE [Suspect]
     Indication: MANIA
     Route: 030
     Dates: start: 20121123, end: 20121123

REACTIONS (4)
  - Grand mal convulsion [None]
  - Fall [None]
  - Laceration [None]
  - Cardio-respiratory arrest [None]
